FAERS Safety Report 7216539-X (Version None)
Quarter: 2011Q1

REPORT INFORMATION
  Report Type: 
  Country: None (occurrence: None)
  Receive Date: 20110109
  Receipt Date: 20110105
  Transmission Date: 20110831
  Serious: Yes (Other)
  Sender: FDA-Public Use
  Company Number: DO-BRISTOL-MYERS SQUIBB COMPANY-15445471

PATIENT
  Age: 20 Year
  Sex: Male

DRUGS (5)
  1. ATAZANAVIR [Suspect]
     Indication: HIV INFECTION
     Route: 048
     Dates: start: 20101005, end: 20101203
  2. TRUVADA [Suspect]
     Indication: HIV INFECTION
     Route: 048
     Dates: start: 20101005, end: 20101203
  3. PARACETAMOL [Concomitant]
     Indication: HEADACHE
     Dates: start: 20100801
  4. RANITIDINE [Concomitant]
     Indication: HYPERCHLORHYDRIA
     Dates: start: 20101019
  5. MULTI-VITAMINS [Concomitant]
     Indication: SUPPLEMENTATION THERAPY
     Dates: start: 20100801

REACTIONS (1)
  - RHABDOMYOLYSIS [None]
